FAERS Safety Report 5914478-5 (Version None)
Quarter: 2008Q4

REPORT INFORMATION
  Report Type: 
  Country: None (occurrence: None)
  Receive Date: 20081007
  Receipt Date: 20080922
  Transmission Date: 20090506
  Serious: Yes (Hospitalization, Other)
  Sender: FDA-Public Use
  Company Number: KADN20080359

PATIENT
  Age: 44 Year
  Sex: Female

DRUGS (7)
  1. KADIAN [Suspect]
     Dates: start: 20030101, end: 20031001
  2. ACTIQ [Suspect]
     Indication: BACK PAIN
     Dosage: 400 MCG, PRN, BU
     Route: 002
     Dates: start: 20030626, end: 20031001
  3. PERCOCET [Suspect]
     Indication: BREAKTHROUGH PAIN
     Dates: start: 20030605, end: 20031001
  4. DURAGESIC-100 [Suspect]
     Dosage: 150 MCG, HOURLY, TRANSDERMAL
     Route: 062
     Dates: start: 20030605
  5. GABITRIL [Concomitant]
  6. TOPAMAX [Concomitant]
  7. LEXAPRO [Concomitant]

REACTIONS (11)
  - ATAXIA [None]
  - CONDITION AGGRAVATED [None]
  - CONVULSION [None]
  - DEPENDENCE [None]
  - DRUG INTOLERANCE [None]
  - DRUG WITHDRAWAL SYNDROME [None]
  - FALL [None]
  - HALLUCINATION [None]
  - OVERDOSE [None]
  - PAIN [None]
  - TOOTH LOSS [None]
